FAERS Safety Report 22814173 (Version 2)
Quarter: 2024Q1

REPORT INFORMATION
  Report Type: Report from Study
  Country: IN (occurrence: IN)
  Receive Date: 20230811
  Receipt Date: 20240319
  Transmission Date: 20240410
  Serious: Yes (Other)
  Sender: FDA-Public Use
  Company Number: IN-002147023-NVSC2023IN172799

PATIENT
  Age: 58 Year
  Sex: Female

DRUGS (2)
  1. RIBOCICLIB [Suspect]
     Active Substance: RIBOCICLIB
     Indication: Hormone receptor positive HER2 negative breast cancer
     Dosage: 600 MG, QD
     Route: 065
     Dates: start: 20220905
  2. RIBOCICLIB [Suspect]
     Active Substance: RIBOCICLIB
     Dosage: 400 MG
     Route: 048
     Dates: start: 20220905

REACTIONS (11)
  - Anaemia macrocytic [Not Recovered/Not Resolved]
  - Urinary retention [Recovered/Resolved]
  - Hydronephrosis [Recovering/Resolving]
  - Cystitis [Recovering/Resolving]
  - Blood urea increased [Recovering/Resolving]
  - Neutrophil count decreased [Unknown]
  - Blood creatinine increased [Recovering/Resolving]
  - Mean cell volume increased [Unknown]
  - White blood cell count decreased [Unknown]
  - Haemoglobin decreased [Not Recovered/Not Resolved]
  - Neutropenia [Unknown]

NARRATIVE: CASE EVENT DATE: 20230203
